FAERS Safety Report 15982490 (Version 1)
Quarter: 2019Q1

REPORT INFORMATION
  Report Type: Report from Study
  Country: US (occurrence: US)
  Receive Date: 20190219
  Receipt Date: 20190219
  Transmission Date: 20190418
  Serious: Yes (Death)
  Sender: FDA-Public Use
  Company Number: US-BAUSCH-BL-2019-004795

PATIENT
  Age: 80 Year
  Sex: Female

DRUGS (6)
  1. XENAZINE [Suspect]
     Active Substance: TETRABENAZINE
     Indication: EXTRAPYRAMIDAL DISORDER
     Route: 048
     Dates: start: 20171019
  2. BANOPHEN [Concomitant]
     Active Substance: DIPHENHYDRAMINE HYDROCHLORIDE
     Indication: PRODUCT USED FOR UNKNOWN INDICATION
  3. MORPHINE SULFATE. [Concomitant]
     Active Substance: MORPHINE SULFATE
     Indication: PRODUCT USED FOR UNKNOWN INDICATION
  4. XENAZINE [Suspect]
     Active Substance: TETRABENAZINE
     Indication: MOVEMENT DISORDER
  5. ATROPINE SULFATE. [Concomitant]
     Active Substance: ATROPINE SULFATE
     Indication: PRODUCT USED FOR UNKNOWN INDICATION
  6. XENAZINE [Suspect]
     Active Substance: TETRABENAZINE
     Indication: PRODUCT USE IN UNAPPROVED INDICATION

REACTIONS (2)
  - Death [Fatal]
  - Product use in unapproved indication [Unknown]

NARRATIVE: CASE EVENT DATE: 20181231
